FAERS Safety Report 4413872-1 (Version None)
Quarter: 2004Q3

REPORT INFORMATION
  Report Type: 
  Country: None (occurrence: None)
  Receive Date: 20040802
  Receipt Date: 20040802
  Transmission Date: 20050211
  Serious: No
  Sender: FDA-Public Use
  Company Number: None

PATIENT
  Age: 79 Year
  Sex: Male
  Weight: 63.5036 kg

DRUGS (12)
  1. ERBITUX [Suspect]
     Indication: COLORECTAL CANCER
     Dates: start: 20040601
  2. ERBITUX [Suspect]
     Indication: COLORECTAL CANCER
     Dates: start: 20040701
  3. ATENOLOL [Concomitant]
  4. PREVACID [Concomitant]
  5. LEVOXYL [Concomitant]
  6. UNIRETIC [Concomitant]
  7. FOSAMAX [Concomitant]
  8. ALLEGRA [Concomitant]
  9. ENDOCET [Concomitant]
  10. PROCRIT [Concomitant]
  11. FLONASE [Concomitant]
  12. COUMADIN [Concomitant]

REACTIONS (1)
  - INTERNATIONAL NORMALISED RATIO INCREASED [None]
